FAERS Safety Report 9459993 (Version 1)
Quarter: 2013Q3

REPORT INFORMATION
  Report Type: Spontaneous
  Country: GB (occurrence: GB)
  Receive Date: 20130815
  Receipt Date: 20130815
  Transmission Date: 20140515
  Serious: Yes (Other)
  Sender: FDA-Public Use
  Company Number: GB-JNJFOC-20130806098

PATIENT
  Age: 52 Year
  Sex: Male
  Weight: 121.5 kg

DRUGS (6)
  1. XARELTO [Suspect]
     Indication: PROPHYLAXIS
     Route: 058
  2. DICLOFENAC [Concomitant]
     Route: 065
  3. METFORMIN [Concomitant]
     Route: 065
  4. INSULIN, HUMULIN REGULAR [Concomitant]
     Route: 065
  5. LIRAGLUTIDE [Concomitant]
     Route: 065
  6. ATORVASTATIN [Concomitant]
     Route: 065

REACTIONS (1)
  - Headache [Recovered/Resolved]
